FAERS Safety Report 7486781-1 (Version None)
Quarter: 2011Q2

REPORT INFORMATION
  Report Type: 
  Country: None (occurrence: None)
  Receive Date: 20110517
  Receipt Date: 20100525
  Transmission Date: 20111010
  Serious: No
  Sender: FDA-Public Use
  Company Number: US-NOVEN-ALL1-2010-03025

PATIENT

DRUGS (5)
  1. LAMICTAL [Concomitant]
     Dosage: 100 MG, 2X/DAY:BID
     Route: 048
     Dates: start: 20080101
  2. DAYTRANA [Suspect]
     Dosage: 10 MG, 1X/DAY:QD
     Route: 062
     Dates: start: 20091001
  3. RISPERIDONE [Concomitant]
     Dosage: 1.5 MG, 3X/DAY:TID (THREE 0.5 MG TABLETS)
     Route: 048
     Dates: start: 20080101
  4. CELEXA [Concomitant]
     Dosage: 5 ML, 1X/DAY:QD
     Route: 048
  5. MIRALAX [Concomitant]
     Dosage: 17 G IN 8 OZ WATER EVERY 3 DAYS
     Route: 048
     Dates: start: 20060101

REACTIONS (5)
  - TREMOR [None]
  - APPLICATION SITE DRYNESS [None]
  - APPLICATION SITE ERYTHEMA [None]
  - PRODUCT QUALITY ISSUE [None]
  - OFF LABEL USE [None]
